FAERS Safety Report 14552067 (Version 1)
Quarter: 2018Q1

REPORT INFORMATION
  Report Type: Spontaneous
  Country: US (occurrence: US)
  Receive Date: 20180216
  Receipt Date: 20180216
  Transmission Date: 20180509
  Serious: Yes (Death)
  Sender: FDA-Public Use
  Company Number: None

PATIENT
  Age: 80 Year
  Sex: Male

DRUGS (1)
  1. WARFARIN [Suspect]
     Active Substance: WARFARIN
     Indication: ATRIAL FIBRILLATION
     Dates: start: 20120827, end: 20180205

REACTIONS (15)
  - Oedema peripheral [None]
  - Leukocytosis [None]
  - Atrial fibrillation [None]
  - Subdural haematoma [None]
  - Chronic obstructive pulmonary disease [None]
  - Coronary artery disease [None]
  - Haemorrhage [None]
  - Dyspnoea [None]
  - Anticoagulation drug level above therapeutic [None]
  - White blood cell count increased [None]
  - Cerebral haematoma [None]
  - Urinary retention [None]
  - Diabetes mellitus [None]
  - Microcytic anaemia [None]
  - Acute kidney injury [None]

NARRATIVE: CASE EVENT DATE: 20180205
